FAERS Safety Report 17889655 (Version 2)
Quarter: 2025Q2

REPORT INFORMATION
  Report Type: Spontaneous
  Country: US (occurrence: US)
  Receive Date: 20200612
  Receipt Date: 20250621
  Transmission Date: 20250716
  Serious: Yes (Hospitalization)
  Sender: AUROBINDO
  Company Number: US-MYLANLABS-2020M1055221

PATIENT
  Age: 47 Year
  Sex: Male

DRUGS (2)
  1. METHYLPHENIDATE [Suspect]
     Active Substance: METHYLPHENIDATE
     Indication: Attention deficit hyperactivity disorder
     Dosage: 5 MILLIGRAM, TWO TIMES A DAY
     Route: 065
  2. BUSPIRONE HYDROCHLORIDE [Suspect]
     Active Substance: BUSPIRONE HYDROCHLORIDE
     Indication: Attention deficit hyperactivity disorder
     Route: 065

REACTIONS (6)
  - Attention deficit hyperactivity disorder [Recovering/Resolving]
  - Condition aggravated [Recovering/Resolving]
  - Agitation [Recovering/Resolving]
  - Paradoxical drug reaction [Recovering/Resolving]
  - Fall [Unknown]
  - Drug ineffective [Unknown]
